FAERS Safety Report 25101444 (Version 1)
Quarter: 2025Q1

REPORT INFORMATION
  Report Type: Spontaneous
  Country: HU (occurrence: HU)
  Receive Date: 20250320
  Receipt Date: 20250320
  Transmission Date: 20250409
  Serious: Yes (Death, Hospitalization, Other)
  Sender: AMGEN
  Company Number: HU-AMGEN-HUNSP2025051831

PATIENT

DRUGS (2)
  1. PROLIA [Suspect]
     Active Substance: DENOSUMAB
     Indication: Osteoporosis
     Route: 065
  2. XGEVA [Suspect]
     Active Substance: DENOSUMAB
     Indication: Metastases to bone
     Route: 065

REACTIONS (9)
  - Ill-defined disorder [Fatal]
  - Osteonecrosis of jaw [Unknown]
  - Actinomyces bacteraemia [Unknown]
  - Pathological fracture [Unknown]
  - Osteonecrosis [Unknown]
  - Oral cavity fistula [Unknown]
  - Oroantral fistula [Unknown]
  - Oronasal fistula [Unknown]
  - Bacterial infection [Unknown]
